FAERS Safety Report 16377723 (Version 1)
Quarter: 2019Q2

REPORT INFORMATION
  Report Type: Report from Study
  Country: ES (occurrence: ES)
  Receive Date: 20190531
  Receipt Date: 20190531
  Transmission Date: 20190711
  Serious: Yes (Death)
  Sender: FDA-Public Use
  Company Number: ES-JNJFOC-20190539096

PATIENT
  Age: 76 Year
  Sex: Male

DRUGS (1)
  1. SIMPONI [Suspect]
     Active Substance: GOLIMUMAB
     Indication: ANKYLOSING SPONDYLITIS
     Route: 058
     Dates: start: 20160510, end: 20180928

REACTIONS (3)
  - Diverticulitis [Fatal]
  - Pneumonia bacterial [Fatal]
  - Peritonitis [Fatal]

NARRATIVE: CASE EVENT DATE: 20181123
